FAERS Safety Report 4459770-9 (Version None)
Quarter: 2004Q3

REPORT INFORMATION
  Report Type: 
  Country: None (occurrence: None)
  Receive Date: 20040928
  Receipt Date: 20040302
  Transmission Date: 20050211
  Serious: No
  Sender: FDA-Public Use
  Company Number: US-BRISTOL-MYERS SQUIBB COMPANY-12521696

PATIENT
  Sex: Female

DRUGS (5)
  1. KENALOG-40 [Suspect]
     Indication: ARTHRALGIA
     Dates: start: 20040301, end: 20040301
  2. ASPIRIN [Concomitant]
     Route: 048
  3. NAPROSYN [Concomitant]
     Route: 048
  4. HYDROCHLOROTHIAZIDE [Concomitant]
     Route: 048
  5. VICODIN [Concomitant]
     Route: 048

REACTIONS (1)
  - SKIN DISCOLOURATION [None]
